FAERS Safety Report 5355313-6 (Version None)
Quarter: 2007Q2

REPORT INFORMATION
  Report Type: 
  Country: None (occurrence: None)
  Receive Date: 20070601
  Receipt Date: 20070306
  Transmission Date: 20071010
  Serious: No
  Sender: FDA-Public Use
  Company Number: S07-USA-01042-01

PATIENT
  Age: 43 Year
  Sex: Female

DRUGS (4)
  1. CAMPRAL [Suspect]
     Indication: ALCOHOLISM
     Dosage: 666 MG TID PO
     Route: 048
     Dates: start: 20070213
  2. LEXAPRO [Concomitant]
  3. BUSPAR [Concomitant]
  4. WELLBUTRIN [Concomitant]

REACTIONS (2)
  - ALCOHOLISM [None]
  - DRUG INEFFECTIVE [None]
